FAERS Safety Report 5823699-1 (Version None)
Quarter: 2008Q3

REPORT INFORMATION
  Report Type: 
  Country: None (occurrence: None)
  Receive Date: 20080725
  Receipt Date: 20080715
  Transmission Date: 20090109
  Serious: Yes (Death, Other)
  Sender: FDA-Public Use
  Company Number: JP-PFIZER INC-2008047541

PATIENT
  Sex: Male
  Weight: 53 kg

DRUGS (7)
  1. ZYVOX [Suspect]
     Indication: SEPSIS
     Route: 042
     Dates: start: 20080418, end: 20080425
  2. ZYVOX [Suspect]
     Indication: PNEUMONIA
  3. MIDAZOLAM HCL [Concomitant]
  4. LEPETAN [Concomitant]
  5. ALBUMIN (HUMAN) [Concomitant]
  6. DOPAMINE HYDROCHLORIDE [Concomitant]
  7. ALL OTHER THERAPEUTIC PRODUCTS [Concomitant]

REACTIONS (2)
  - GENERAL PHYSICAL HEALTH DETERIORATION [None]
  - THROMBOCYTOPENIA [None]
